FAERS Safety Report 8603423-X (Version None)
Quarter: 2012Q3

REPORT INFORMATION
  Report Type: 
  Country: None (occurrence: None)
  Receive Date: 20120817
  Receipt Date: 20120815
  Transmission Date: 20120928
  Serious: No
  Sender: FDA-Public Use
  Company Number: US-PFIZER INC-2012200830

PATIENT
  Age: 73 Year
  Sex: Female
  Weight: 86.168 kg

DRUGS (6)
  1. HYDROCODONE [Concomitant]
     Indication: PAIN
     Dosage: UNK
  2. LIPITOR [Suspect]
     Dosage: 80 MG, DAILY
  3. ATORVASTATIN CALCIUM [Suspect]
     Indication: BLOOD CHOLESTEROL INCREASED
     Dosage: UNK
  4. LIPITOR [Suspect]
     Dosage: 40 MG, DAILY
  5. LEVOTHYROXINE [Concomitant]
     Indication: HORMONE REPLACEMENT THERAPY
     Dosage: 100 UG, DAILY
  6. LIPITOR [Suspect]
     Indication: BLOOD CHOLESTEROL INCREASED
     Dosage: 10 MG, DAILY
     Dates: start: 19960901

REACTIONS (1)
  - NEUROPATHY PERIPHERAL [None]
